FAERS Safety Report 6371122-3 (Version None)
Quarter: 2009Q3

REPORT INFORMATION
  Report Type: 
  Country: None (occurrence: None)
  Receive Date: 20090918
  Receipt Date: 20090911
  Transmission Date: 20100115
  Serious: Yes (Other)
  Sender: FDA-Public Use
  Company Number: A-CH2009-23566

PATIENT
  Age: 70 Year
  Sex: Female

DRUGS (3)
  1. TRACLEER [Suspect]
     Indication: PULMONARY HYPERTENSION
     Dosage: 125 MG, BID, ORAL, ORAL, ORAL
     Route: 048
     Dates: start: 20080101, end: 20080101
  2. TRACLEER [Suspect]
     Indication: PULMONARY HYPERTENSION
     Dosage: 125 MG, BID, ORAL, ORAL, ORAL
     Route: 048
     Dates: start: 20080101, end: 20081201
  3. CHRONADALATE (NIFEDIPINE) [Concomitant]

REACTIONS (15)
  - ALANINE AMINOTRANSFERASE INCREASED [None]
  - ASPARTATE AMINOTRANSFERASE INCREASED [None]
  - AUTOIMMUNE DISORDER [None]
  - AUTOIMMUNE HEPATITIS [None]
  - BLOOD ALKALINE PHOSPHATASE INCREASED [None]
  - GAMMA-GLUTAMYLTRANSFERASE INCREASED [None]
  - GRANULOMA [None]
  - INFLAMMATION [None]
  - LIVER DISORDER [None]
  - LYMPHADENOPATHY MEDIASTINAL [None]
  - PORTAL HYPERTENSION [None]
  - SARCOIDOSIS [None]
  - SMOOTH MUSCLE ANTIBODY POSITIVE [None]
  - TUBERCULOSIS [None]
  - WEIGHT DECREASED [None]
